FAERS Safety Report 11613552 (Version 1)
Quarter: 2015Q4

REPORT INFORMATION
  Report Type: Spontaneous
  Country: DE (occurrence: DE)
  Receive Date: 20151008
  Receipt Date: 20151008
  Transmission Date: 20160304
  Serious: Yes (Other)
  Sender: FDA-Public Use
  Company Number: DE-BAYER-2015-434027

PATIENT
  Age: 24 Year
  Sex: Female

DRUGS (1)
  1. MIRENA [Suspect]
     Active Substance: LEVONORGESTREL
     Indication: CONTRACEPTION
     Dosage: 20 MCG/24HR, CONT
     Route: 015
     Dates: start: 20140926, end: 201508

REACTIONS (14)
  - Nausea [Unknown]
  - Weight decreased [Unknown]
  - Irritability [Unknown]
  - Constipation [Unknown]
  - Abdominal pain lower [Unknown]
  - Palpitations [Unknown]
  - Agitation [Unknown]
  - Vomiting [Unknown]
  - Hypoacusis [Unknown]
  - Panic attack [Unknown]
  - Anxiety disorder [Unknown]
  - Visual impairment [Unknown]
  - Dizziness [Unknown]
  - Acne [Unknown]

NARRATIVE: CASE EVENT DATE: 20141010
